FAERS Safety Report 8895314 (Version 1)
Quarter: 2012Q4

REPORT INFORMATION
  Report Type: 
  Country: CN (occurrence: CN)
  Receive Date: 20121108
  Receipt Date: 20121108
  Transmission Date: 20130627
  Serious: Yes (Other)
  Sender: FDA-Public Use
  Company Number: CN-PFIZER INC-2012278575

PATIENT
  Age: 11 Month
  Sex: Female
  Weight: 8 kg

DRUGS (2)
  1. MOTRIN IB [Suspect]
     Indication: FEVER
     Dosage: 30 mg, 1x/day (1.5ml)
     Route: 048
     Dates: start: 20121101, end: 20121101
  2. CHINESE MEDICATION [Suspect]
     Indication: FEVER
     Dosage: UNK
     Route: 048

REACTIONS (2)
  - Vomiting [Recovering/Resolving]
  - Diarrhoea [Recovering/Resolving]
